FAERS Safety Report 9833976 (Version 2)
Quarter: 2014Q1

REPORT INFORMATION
  Report Type: Report from Study
  Country: CL (occurrence: CL)
  Receive Date: 20140122
  Receipt Date: 20140122
  Transmission Date: 20141002
  Serious: Yes (Other)
  Sender: FDA-Public Use
  Company Number: CL-ROCHE-1257740

PATIENT
  Age: 76 Year
  Sex: Male
  Weight: 68 kg

DRUGS (2)
  1. XELODA [Suspect]
     Indication: RECTAL CANCER
     Dosage: 14 DAYS PER CYCLE
     Route: 048
     Dates: start: 20130703
  2. OXALIPLATIN [Suspect]
     Indication: RECTAL CANCER
     Route: 042
     Dates: start: 20130703

REACTIONS (7)
  - Testicular swelling [Not Recovered/Not Resolved]
  - Penile swelling [Not Recovered/Not Resolved]
  - Carcinoembryonic antigen increased [Not Recovered/Not Resolved]
  - Paraesthesia [Not Recovered/Not Resolved]
  - Hypoaesthesia [Not Recovered/Not Resolved]
  - Local swelling [Not Recovered/Not Resolved]
  - Local swelling [Not Recovered/Not Resolved]
